FAERS Safety Report 13801572 (Version 1)
Quarter: 2017Q3

REPORT INFORMATION
  Report Type: Spontaneous
  Country: CA (occurrence: CA)
  Receive Date: 20170727
  Receipt Date: 20170727
  Transmission Date: 20171127
  Serious: Yes (Other)
  Sender: FDA-Public Use
  Company Number: PHHY2017CA106455

PATIENT
  Age: 7 Year
  Sex: Male

DRUGS (2)
  1. VALPROATE SODIUM. [Suspect]
     Active Substance: VALPROATE SODIUM
     Indication: PETIT MAL EPILEPSY
     Dosage: 750 MG, QD
     Route: 065
  2. VALPROATE SODIUM. [Suspect]
     Active Substance: VALPROATE SODIUM
     Dosage: 1 G, QD
     Route: 065

REACTIONS (6)
  - Lacrimal gland enlargement [Recovered/Resolved]
  - Discomfort [Recovered/Resolved]
  - Conjunctival oedema [Recovered/Resolved]
  - Salivary gland enlargement [Recovered/Resolved]
  - Eyelid oedema [Recovered/Resolved]
  - Parotid gland enlargement [Recovered/Resolved]
